FAERS Safety Report 12264058 (Version 1)
Quarter: 2016Q2

REPORT INFORMATION
  Report Type: Spontaneous
  Country: US (occurrence: US)
  Receive Date: 20160413
  Receipt Date: 20160413
  Transmission Date: 20160815
  Serious: No
  Sender: FDA-Public Use
  Company Number: US-JNJFOC-20160215742

PATIENT
  Age: 52 Year
  Sex: Male
  Weight: 72.58 kg

DRUGS (2)
  1. MENS ROGAINE EXTRA STRENGTH [Suspect]
     Active Substance: MINOXIDIL
     Indication: ALOPECIA
     Route: 061
  2. MENS ROGAINE EXTRA STRENGTH [Suspect]
     Active Substance: MINOXIDIL
     Route: 061

REACTIONS (5)
  - Skin irritation [Recovering/Resolving]
  - Pruritus [Recovering/Resolving]
  - Medication residue present [Recovering/Resolving]
  - Burning sensation [Recovering/Resolving]
  - Inappropriate schedule of drug administration [Recovering/Resolving]
